FAERS Safety Report 8905689 (Version 2)
Quarter: 2012Q4

REPORT INFORMATION
  Report Type: 
  Country: US (occurrence: US)
  Receive Date: 20121113
  Receipt Date: 20121205
  Transmission Date: 20130627
  Serious: Yes (Other)
  Sender: FDA-Public Use
  Company Number: US-TEVA-358281USA

PATIENT
  Sex: Female

DRUGS (1)
  1. MEDROXYPROGESTERONE [Suspect]

REACTIONS (4)
  - Retinal detachment [Unknown]
  - Glaucoma [Unknown]
  - Intraocular pressure increased [Unknown]
  - Headache [Unknown]
